FAERS Safety Report 18591744 (Version 5)
Quarter: 2021Q1

REPORT INFORMATION
  Report Type: Spontaneous
  Country: US (occurrence: US)
  Receive Date: 20201208
  Receipt Date: 20210310
  Transmission Date: 20210419
  Serious: No
  Sender: FDA-Public Use
  Company Number: US-PFIZER INC-2020479625

PATIENT
  Age: 12 Year
  Sex: Male
  Weight: 31.75 kg

DRUGS (1)
  1. GENOTROPIN [Suspect]
     Active Substance: SOMATROPIN
     Indication: SHORT STATURE
     Dosage: 1.3 MG, 1X/DAY (1.3 MG INJECTED NIGHTLY)
     Dates: start: 202008

REACTIONS (5)
  - Poor quality device used [Unknown]
  - Device leakage [Unknown]
  - Device issue [Unknown]
  - Drug dose omission by device [Unknown]
  - Device use issue [Unknown]
